FAERS Safety Report 5870356-1 (Version None)
Quarter: 2008Q3

REPORT INFORMATION
  Report Type: 
  Country: None (occurrence: None)
  Receive Date: 20080904
  Receipt Date: 20071010
  Transmission Date: 20090109
  Serious: No
  Sender: FDA-Public Use
  Company Number: US-BRISTOL-MYERS SQUIBB COMPANY-13935796

PATIENT
  Age: 69 Year
  Sex: Male
  Weight: 111 kg

DRUGS (1)
  1. DEFINITY [Suspect]
     Indication: ECHOCARDIOGRAM
     Dosage: TOTAL DOSE: 2/3 OF THE VIAL DILUTED IN NORMAL SALINE.
     Dates: start: 20071010, end: 20071010

REACTIONS (3)
  - DIZZINESS [None]
  - FLUSHING [None]
  - NECK PAIN [None]
